FAERS Safety Report 8063619-5 (Version None)
Quarter: 2012Q1

REPORT INFORMATION
  Report Type: 
  Country: None (occurrence: None)
  Receive Date: 20120123
  Receipt Date: 20120112
  Transmission Date: 20120608
  Serious: Yes (Hospitalization, Other)
  Sender: FDA-Public Use
  Company Number: US-BAYER-2011-101776

PATIENT
  Age: 70 Year
  Sex: Male
  Weight: 100 kg

DRUGS (7)
  1. NITROGLYCERIN [Concomitant]
  2. ASPIRIN [Suspect]
     Indication: ISCHAEMIC HEART DISEASE PROPHYLAXIS
     Dosage: 1 DF, QD
     Route: 048
     Dates: start: 20101101, end: 20110701
  3. XANAX [Concomitant]
     Dosage: UNK UNK, BID
  4. LIPITOR [Concomitant]
  5. EFFEXOR [Concomitant]
  6. GLYCILAX [Concomitant]
  7. BETAPACE [Concomitant]

REACTIONS (6)
  - HAEMATOCHEZIA [None]
  - FUNCTIONAL GASTROINTESTINAL DISORDER [None]
  - HAEMORRHAGIC ANAEMIA [None]
  - LOSS OF CONSCIOUSNESS [None]
  - MELAENA [None]
  - DELIRIUM [None]
